FAERS Safety Report 9225605 (Version 2)
Quarter: 2013Q2

REPORT INFORMATION
  Report Type: Spontaneous
  Country: US (occurrence: US)
  Receive Date: 20130411
  Receipt Date: 20130509
  Transmission Date: 20140414
  Serious: Yes (Other)
  Sender: FDA-Public Use
  Company Number: US-PFIZER INC-2013113554

PATIENT
  Age: 45 Year
  Sex: Male
  Weight: 120.18 kg

DRUGS (14)
  1. LYRICA [Suspect]
     Indication: NEURALGIA
     Dosage: 50MG IN MORNING/50MG IN AFTERNOON/100 MG IN NIGHT
     Route: 048
     Dates: start: 201303
  2. LYRICA [Suspect]
     Indication: SPINAL COLUMN STENOSIS
     Dosage: 30 MG, 3X/DAY
     Dates: start: 2013
  3. LYRICA [Suspect]
     Indication: BIPOLAR DISORDER
  4. LYRICA [Suspect]
     Indication: DEPRESSION
  5. LYRICA [Suspect]
     Indication: SPINAL FRACTURE
  6. SEROQUEL [Suspect]
     Dosage: 400 MG, UNK
  7. XANAX [Concomitant]
     Indication: PANIC ATTACK
     Dosage: UNK
  8. OXYCODONE [Concomitant]
     Indication: PAIN
     Dosage: UNK, 4 PER DAY
  9. OXYCODONE [Concomitant]
     Dosage: UNK
  10. SOMA [Concomitant]
     Dosage: UNK
  11. NEXIUM [Concomitant]
     Indication: GASTRIC DISORDER
     Dosage: 40 MG, 2X/DAY
  12. PHENERGAN [Concomitant]
     Indication: GASTRIC DISORDER
     Dosage: UNK
  13. PHENERGAN [Concomitant]
     Indication: NAUSEA
     Dosage: UNK
  14. ALPRAZOLAM [Concomitant]
     Indication: PANIC ATTACK
     Dosage: UNK, 4 PER DAY

REACTIONS (6)
  - Panic attack [Unknown]
  - Weight increased [Unknown]
  - Mania [Unknown]
  - Therapeutic response unexpected [Unknown]
  - Drug dose omission [Unknown]
  - Off label use [Unknown]
